FAERS Safety Report 6702025-X (Version None)
Quarter: 2010Q2

REPORT INFORMATION
  Report Type: 
  Country: None (occurrence: None)
  Receive Date: 20100429
  Receipt Date: 20100420
  Transmission Date: 20101027
  Serious: Yes (Other)
  Sender: FDA-Public Use
  Company Number: US-PFIZER INC-2008016165

PATIENT
  Sex: Female

DRUGS (7)
  1. DILANTIN [Suspect]
     Indication: CONVULSION
     Dosage: 390 MG, 1X/DAY
  2. PRILOSEC [Concomitant]
     Dosage: 20 MG, 2X/DAY
  3. PRIMIDONE [Concomitant]
     Dosage: 250 MG, 2X/DAY
  4. DITROPAN XL [Concomitant]
     Dosage: 10 MG, 1X/DAY
  5. LAMICTAL [Concomitant]
     Dosage: UNK
  6. GABITRIL [Concomitant]
     Dosage: 4 MG, 3X/DAY
  7. GRAPE SEED EXTRACT [Concomitant]
     Dosage: UNK

REACTIONS (4)
  - CONVULSION [None]
  - LETHARGY [None]
  - PRODUCT FORMULATION ISSUE [None]
  - SOMNOLENCE [None]
